FAERS Safety Report 5885812-X (Version None)
Quarter: 2008Q3

REPORT INFORMATION
  Report Type: 
  Country: None (occurrence: None)
  Receive Date: 20080917
  Receipt Date: 20080821
  Transmission Date: 20090109
  Serious: No
  Sender: FDA-Public Use
  Company Number: US-JNJFOC-20080804083

PATIENT
  Sex: Male
  Weight: 79.38 kg

DRUGS (4)
  1. INVEGA [Suspect]
     Indication: SCHIZOPHRENIA
     Route: 048
  2. LITHIUM CARBONATE [Concomitant]
     Indication: MENTAL DISORDER
     Route: 065
  3. SYNTHROID [Concomitant]
     Indication: HYPOTHYROIDISM
     Dosage: 50 MCG DAILY
     Route: 048
  4. GEODON [Concomitant]
     Indication: DRUG USE FOR UNKNOWN INDICATION
     Route: 048

REACTIONS (5)
  - ASTHENIA [None]
  - DECREASED APPETITE [None]
  - DYSKINESIA [None]
  - ERECTILE DYSFUNCTION [None]
  - PAIN IN EXTREMITY [None]
